FAERS Safety Report 7326917-6 (Version None)
Quarter: 2011Q1

REPORT INFORMATION
  Report Type: 
  Country: None (occurrence: None)
  Receive Date: 20110302
  Receipt Date: 20091209
  Transmission Date: 20110831
  Serious: No
  Sender: FDA-Public Use
  Company Number: US-PFIZER INC-2009290312

PATIENT
  Sex: Female

DRUGS (2)
  1. TOPROL-XL [Concomitant]
     Dosage: UNK
  2. DILANTIN-125 [Suspect]
     Indication: CONVULSION
     Dosage: 360 MG, UNK

REACTIONS (1)
  - PRURITUS [None]
